FAERS Safety Report 11461147 (Version 2)
Quarter: 2015Q4

REPORT INFORMATION
  Report Type: Spontaneous
  Country: US (occurrence: US)
  Receive Date: 20150831
  Receipt Date: 20151027
  Transmission Date: 20160304
  Serious: No
  Sender: FDA-Public Use
  Company Number: US-ELI_LILLY_AND_COMPANY-US201003003405

PATIENT
  Age: 80 Year
  Sex: Female

DRUGS (15)
  1. FORTEO [Suspect]
     Active Substance: TERIPARATIDE
     Indication: OSTEOPOROSIS
     Dosage: 20 UG, DAILY (1/D)
     Dates: start: 200907
  2. CARDIZEM [Concomitant]
     Active Substance: DILTIAZEM HYDROCHLORIDE
     Indication: CARDIAC DISORDER
     Dosage: 120 UG, DAILY (1/D)
  3. FLOVENT [Concomitant]
     Active Substance: FLUTICASONE PROPIONATE
     Dosage: 110 UG, 2 PUFFS TWICE A DAY
  4. NASONEX [Concomitant]
     Active Substance: MOMETASONE FUROATE
     Dosage: 50 UG, 2 PUFFS DAILY
  5. MULTI-VIT [Concomitant]
     Active Substance: VITAMINS
  6. CYMBALTA [Suspect]
     Active Substance: DULOXETINE HYDROCHLORIDE
     Indication: DEPRESSION
     Dosage: 20 MG, 2/D
  7. CRESTOR [Concomitant]
     Active Substance: ROSUVASTATIN CALCIUM
     Dosage: 20 MG, DAILY (1/D)
  8. OMEPRAZOLE. [Concomitant]
     Active Substance: OMEPRAZOLE
     Dosage: 20 MG, 2/D
  9. AMBIEN [Concomitant]
     Active Substance: ZOLPIDEM TARTRATE
     Indication: SLEEP DISORDER
     Dosage: 10 MG, DAILY (1/D)
  10. BENICAR [Concomitant]
     Active Substance: OLMESARTAN MEDOXOMIL
     Dosage: 40 MG, DAILY (1/D)
  11. CLARINEX [Concomitant]
     Active Substance: DESLORATADINE
     Indication: MULTIPLE ALLERGIES
     Dosage: 5 MG, AS NEEDED
  12. FLUOXETINE [Concomitant]
     Active Substance: FLUOXETINE HYDROCHLORIDE
     Dosage: 10 MG, 3 DAILY
  13. XANAX [Concomitant]
     Active Substance: ALPRAZOLAM
     Dosage: 0.25 MG, DAILY (1/D)
  14. ASPIRIN. [Concomitant]
     Active Substance: ASPIRIN
  15. CALCIUM [Concomitant]
     Active Substance: CALCIUM

REACTIONS (13)
  - Fall [Recovered/Resolved]
  - Fall [Recovering/Resolving]
  - Contusion [Unknown]
  - Emotional distress [Not Recovered/Not Resolved]
  - Fall [Unknown]
  - Fatigue [Unknown]
  - Eye contusion [Recovering/Resolving]
  - Head injury [Recovering/Resolving]
  - Skin abrasion [Recovering/Resolving]
  - Facial bones fracture [Recovering/Resolving]
  - Laceration [Recovering/Resolving]
  - Swelling face [Recovering/Resolving]
  - Haematoma [Recovering/Resolving]

NARRATIVE: CASE EVENT DATE: 200912
